FAERS Safety Report 6713891-6 (Version None)
Quarter: 2010Q2

REPORT INFORMATION
  Report Type: 
  Country: None (occurrence: None)
  Receive Date: 20100506
  Receipt Date: 20100503
  Transmission Date: 20101027
  Serious: Yes (Death)
  Sender: FDA-Public Use
  Company Number: US-PFIZER INC-2010056252

PATIENT
  Age: 60 Year
  Sex: Female

DRUGS (6)
  1. GEODON [Suspect]
     Indication: BIPOLAR DISORDER
     Dosage: 50 MG, 2X/DAY
     Dates: start: 20100317
  2. DIGOXIN [Concomitant]
     Dosage: UNK
  3. GLYCERYL TRINITRATE [Concomitant]
     Dosage: UNK
  4. LASIX [Concomitant]
     Dosage: UNK
  5. ELAVIL [Concomitant]
     Dosage: 150 MG, 1X/DAY
  6. LITHIUM [Concomitant]
     Dosage: 300 MG, 2X/DAY

REACTIONS (1)
  - DEATH [None]
